FAERS Safety Report 21155664 (Version 1)
Quarter: 2022Q3

REPORT INFORMATION
  Report Type: Spontaneous
  Country: ES (occurrence: ES)
  Receive Date: 20220801
  Receipt Date: 20220801
  Transmission Date: 20221027
  Serious: Yes (Other)
  Sender: FDA-Public Use
  Company Number: None

PATIENT
  Age: 71 Year
  Sex: Female

DRUGS (1)
  1. RIFAMPIN [Suspect]
     Active Substance: RIFAMPIN
     Indication: Endocarditis
     Dosage: 300MG FREQUENCY-8H
     Route: 048
     Dates: start: 20210831, end: 20210902

REACTIONS (1)
  - Hyperbilirubinaemia [Recovered/Resolved]
